FAERS Safety Report 10305083 (Version 1)
Quarter: 2014Q3

REPORT INFORMATION
  Report Type: Spontaneous
  Country: US (occurrence: None)
  Receive Date: 20140711
  Receipt Date: 20140711
  Transmission Date: 20150326
  Serious: Yes (Hospitalization)
  Sender: FDA-Public Use
  Company Number: None

PATIENT
  Age: 69 Year
  Sex: Male
  Weight: 107.4 kg

DRUGS (2)
  1. FUROSEMIDE. [Suspect]
     Active Substance: FUROSEMIDE
     Indication: FLUID RETENTION
     Dosage: 40 MG, EVERY DAY, PO
     Route: 048
     Dates: start: 20140131, end: 20140311
  2. ALLOPURINOL. [Suspect]
     Active Substance: ALLOPURINOL
     Indication: GOUT
     Dosage: 100 MG, EVERY DAY, PO
     Route: 048
     Dates: start: 20130515, end: 20140311

REACTIONS (11)
  - Erythema [None]
  - Hearing impaired [None]
  - Hyperhidrosis [None]
  - Chills [None]
  - Dyspnoea [None]
  - Tachycardia [None]
  - Pyrexia [None]
  - Oedema [None]
  - Eye swelling [None]
  - Rash [None]
  - Angioedema [None]

NARRATIVE: CASE EVENT DATE: 20140323
